FAERS Safety Report 25813403 (Version 1)
Quarter: 2025Q3

REPORT INFORMATION
  Report Type: Spontaneous
  Country: US (occurrence: US)
  Receive Date: 20250917
  Receipt Date: 20250917
  Transmission Date: 20251021
  Serious: No
  Sender: DR REDDYS
  Company Number: US-MLMSERVICE-20250825-PI625234-00327-1

PATIENT
  Age: 1 Decade
  Sex: Male

DRUGS (2)
  1. DIVALPROEX SODIUM [Suspect]
     Active Substance: DIVALPROEX SODIUM
     Indication: Seizure
  2. CANNABIDIOL [Concomitant]
     Active Substance: CANNABIDIOL
     Indication: Seizure

REACTIONS (1)
  - Gastrointestinal disorder [Unknown]
